FAERS Safety Report 4413138-X (Version None)
Quarter: 2004Q3

REPORT INFORMATION
  Report Type: 
  Country: None (occurrence: None)
  Receive Date: 20040802
  Receipt Date: 20040714
  Transmission Date: 20050211
  Serious: Yes (Hospitalization)
  Sender: FDA-Public Use
  Company Number: US-MERCK-0407USA01261

PATIENT
  Age: 60 Year
  Sex: Female

DRUGS (4)
  1. HYDRALAZINE [Concomitant]
     Route: 065
  2. ACCUPRIL [Concomitant]
     Route: 065
  3. VIOXX [Suspect]
     Indication: RHEUMATOID ARTHRITIS
     Route: 048
     Dates: start: 20020101
  4. TAMOXIFEN CITRATE [Concomitant]
     Route: 065

REACTIONS (1)
  - CEREBROVASCULAR ACCIDENT [None]
